FAERS Safety Report 6818260-6 (Version None)
Quarter: 2010Q3

REPORT INFORMATION
  Report Type: 
  Country: None (occurrence: None)
  Receive Date: 20100706
  Receipt Date: 20070522
  Transmission Date: 20110219
  Serious: No
  Sender: FDA-Public Use
  Company Number: US-PFIZER INC-2007024850

PATIENT
  Sex: Female
  Weight: 61.69 kg

DRUGS (4)
  1. ZITHROMAX [Suspect]
     Indication: OROPHARYNGEAL PAIN
     Route: 048
     Dates: start: 20070317, end: 20070324
  2. ZITHROMAX [Suspect]
     Indication: PHARYNGITIS
  3. MOTRIN [Concomitant]
  4. TYLENOL [Concomitant]

REACTIONS (3)
  - OROPHARYNGEAL BLISTERING [None]
  - STOMATITIS [None]
  - TONGUE BLISTERING [None]
